FAERS Safety Report 6105499-0 (Version None)
Quarter: 2009Q1

REPORT INFORMATION
  Report Type: 
  Country: None (occurrence: None)
  Receive Date: 20090306
  Receipt Date: 20090227
  Transmission Date: 20090719
  Serious: Yes (Hospitalization)
  Sender: FDA-Public Use
  Company Number: A0771650A

PATIENT
  Age: 66 Year
  Sex: Female
  Weight: 62.3 kg

DRUGS (9)
  1. AVANDIA [Suspect]
     Indication: DIABETES MELLITUS
     Dosage: 8MG PER DAY
     Route: 048
     Dates: start: 20010101, end: 20050101
  2. GLUCOPHAGE [Concomitant]
  3. TOPROL-XL [Concomitant]
  4. PREDNISONE [Concomitant]
  5. METHYLPREDNISOLONE 4MG TAB [Concomitant]
  6. VIOXX [Concomitant]
  7. PRAVASTATIN [Concomitant]
  8. TRICOR [Concomitant]
  9. FOSAMAX [Concomitant]

REACTIONS (7)
  - ACUTE CORONARY SYNDROME [None]
  - ATRIAL FIBRILLATION [None]
  - CARDIAC FAILURE CONGESTIVE [None]
  - CAROTID ARTERY DISEASE [None]
  - ISCHAEMIC CARDIOMYOPATHY [None]
  - MYOCARDIAL INFARCTION [None]
  - TRANSIENT ISCHAEMIC ATTACK [None]
